FAERS Safety Report 21353768 (Version 1)
Quarter: 2022Q3

REPORT INFORMATION
  Report Type: Spontaneous
  Country: US (occurrence: None)
  Receive Date: 20220919
  Receipt Date: 20220919
  Transmission Date: 20221026
  Serious: No
  Sender: FDA-Public Use
  Company Number: None

PATIENT
  Age: 74 Year
  Sex: Female
  Weight: 65.77 kg

DRUGS (6)
  1. INLYTA [Suspect]
     Active Substance: AXITINIB
     Indication: Renal cancer
     Dosage: FREQUENCY : TWICE A DAY;?
     Route: 048
     Dates: start: 202206, end: 20220919
  2. JANUVIA [Concomitant]
  3. ENALAPRIL [Concomitant]
  4. METFORMIN [Concomitant]
  5. NORVASC [Concomitant]
  6. OXYCODONE [Concomitant]

REACTIONS (1)
  - Neoplasm progression [None]
